FAERS Safety Report 12824344 (Version 1)
Quarter: 2016Q4

REPORT INFORMATION
  Report Type: Spontaneous
  Country: US (occurrence: US)
  Receive Date: 20161007
  Receipt Date: 20161007
  Transmission Date: 20170207
  Serious: No
  Sender: FDA-Public Use
  Company Number: None

PATIENT

DRUGS (1)
  1. SUBLINGUAL GENERIC SUBOXONE [Suspect]
     Active Substance: BUPRENORPHINE HYDROCHLORIDE\NALOXONE HYDROCHLORIDE
     Indication: DRUG DEPENDENCE
     Route: 060

REACTIONS (9)
  - Urticaria [None]
  - Dizziness [None]
  - Swollen tongue [None]
  - Nausea [None]
  - Muscle spasms [None]
  - Blood pressure increased [None]
  - Dyspnoea [None]
  - Weight decreased [None]
  - Vomiting [None]

NARRATIVE: CASE EVENT DATE: 20150422
